FAERS Safety Report 9472932 (Version 2)
Quarter: 2013Q3

REPORT INFORMATION
  Report Type: Spontaneous
  Country: US (occurrence: US)
  Receive Date: 20130823
  Receipt Date: 20130823
  Transmission Date: 20140515
  Serious: Yes (Other)
  Sender: FDA-Public Use
  Company Number: US-BRISTOL-MYERS SQUIBB COMPANY-17248105

PATIENT
  Age: 56 Year
  Sex: Male

DRUGS (3)
  1. SPRYCEL [Suspect]
     Indication: CHRONIC MYELOID LEUKAEMIA
     Route: 048
     Dates: start: 20120217, end: 20121219
  2. CYMBALTA [Concomitant]
  3. POTASSIUM PHOSPHATE MONOBASIC [Concomitant]

REACTIONS (1)
  - Pleural effusion [Recovered/Resolved]
